FAERS Safety Report 17699617 (Version 1)
Quarter: 2020Q2

REPORT INFORMATION
  Report Type: Spontaneous
  Country: DE (occurrence: DE)
  Receive Date: 20200423
  Receipt Date: 20200423
  Transmission Date: 20200714
  Serious: Yes (Other)
  Sender: FDA-Public Use
  Company Number: NVSC2020DE108410

PATIENT
  Age: 58 Year
  Sex: Male

DRUGS (2)
  1. ACTILYSE [Suspect]
     Active Substance: ALTEPLASE
     Indication: ACUTE MYOCARDIAL INFARCTION
     Dosage: 100 MG
     Route: 065
  2. HEPARIN [Suspect]
     Active Substance: HEPARIN SODIUM
     Indication: PRODUCT USED FOR UNKNOWN INDICATION
     Dosage: UNK
     Route: 042

REACTIONS (8)
  - Heparin-induced thrombocytopenia [Unknown]
  - Cerebral artery embolism [Unknown]
  - Pupils unequal [Unknown]
  - Cardiac aneurysm [Unknown]
  - Venous thrombosis limb [Unknown]
  - Cerebral haemorrhage [Unknown]
  - Cardiac ventricular thrombosis [Unknown]
  - Pharyngeal haemorrhage [Unknown]
